APPROVED DRUG PRODUCT: MEDIHALER-EPI
Active Ingredient: EPINEPHRINE BITARTRATE
Strength: 0.3MG/INH
Dosage Form/Route: AEROSOL, METERED;INHALATION
Application: N010374 | Product #003
Applicant: 3M PHARMACEUTICALS INC
Approved: Approved Prior to Jan 1, 1982 | RLD: No | RS: No | Type: DISCN